FAERS Safety Report 7233034-2 (Version None)
Quarter: 2011Q1

REPORT INFORMATION
  Report Type: 
  Country: None (occurrence: None)
  Receive Date: 20110119
  Receipt Date: 20110113
  Transmission Date: 20110831
  Serious: Yes (Hospitalization)
  Sender: FDA-Public Use
  Company Number: BR-B.I. PHARMACEUTICALS,INC./RIDGEFIELD-2011-BR-00066BR

PATIENT
  Sex: Male

DRUGS (2)
  1. ATENSINA [Suspect]
     Indication: BLOOD PRESSURE INCREASED
  2. CARDIZEM [Suspect]
     Indication: BLOOD PRESSURE INCREASED

REACTIONS (2)
  - DRUG INEFFECTIVE [None]
  - OBESITY SURGERY [None]
